FAERS Safety Report 22208432 (Version 2)
Quarter: 2024Q3

REPORT INFORMATION
  Report Type: Spontaneous
  Country: US (occurrence: US)
  Receive Date: 20230413
  Receipt Date: 20240806
  Transmission Date: 20241017
  Serious: No
  Sender: BIOVITRUM
  Company Number: US-BIOVITRUM-2023-US-13548

PATIENT
  Age: 76 Year
  Sex: Female

DRUGS (2)
  1. DOPTELET [Suspect]
     Active Substance: AVATROMBOPAG MALEATE
     Indication: Immune thrombocytopenia
     Dosage: FREQUENCY AS ORDERED
     Route: 048
     Dates: start: 202207
  2. DOPTELET [Suspect]
     Active Substance: AVATROMBOPAG MALEATE
     Dosage: UPPED DOSAGE TO TWO A DAY.
     Route: 048

REACTIONS (2)
  - Platelet count decreased [Unknown]
  - Insomnia [Unknown]
